FAERS Safety Report 18532021 (Version 5)
Quarter: 2022Q1

REPORT INFORMATION
  Report Type: Report from Study
  Country: US (occurrence: US)
  Receive Date: 20201123
  Receipt Date: 20220215
  Transmission Date: 20220423
  Serious: Yes (Other)
  Sender: FDA-Public Use
  Company Number: US-NOVARTISPH-NVSC2020US311432

PATIENT
  Sex: Female

DRUGS (1)
  1. KISQALI [Suspect]
     Active Substance: RIBOCICLIB
     Indication: Product used for unknown indication
     Dosage: UNK
     Route: 048

REACTIONS (7)
  - Neoplasm malignant [Unknown]
  - Psoriasis [Unknown]
  - Feeling abnormal [Unknown]
  - Tooth infection [Unknown]
  - Tooth loss [Unknown]
  - Malaise [Unknown]
  - Rash [Unknown]
